FAERS Safety Report 21457910 (Version 1)
Quarter: 2022Q4

REPORT INFORMATION
  Report Type: Report from Study
  Country: US (occurrence: US)
  Receive Date: 20221014
  Receipt Date: 20221014
  Transmission Date: 20230112
  Serious: Yes (Other)
  Sender: FDA-Public Use
  Company Number: US-VERTEX PHARMACEUTICALS-2022-004294

PATIENT
  Sex: Male

DRUGS (15)
  1. TRIKAFTA [Suspect]
     Active Substance: ELEXACAFTOR\IVACAFTOR\TEZACAFTOR
     Indication: Cystic fibrosis
     Dosage: (1 ORANGE TABLET EVERY OTHER MORNING) MODIFIED DOSE
     Route: 048
     Dates: start: 20220301
  2. TRIKAFTA [Suspect]
     Active Substance: ELEXACAFTOR\IVACAFTOR\TEZACAFTOR
     Dosage: MODIFIED REGIMEN
     Route: 048
     Dates: end: 20220930
  3. ALLOPURINOL [Concomitant]
     Active Substance: ALLOPURINOL
     Dosage: TABLETS
  4. AZITHROMYCIN [Concomitant]
     Active Substance: AZITHROMYCIN
     Dosage: TABLETS
  5. CLONAZEPAM [Concomitant]
     Active Substance: CLONAZEPAM
     Dosage: TABLETS
  6. CREON [Concomitant]
     Active Substance: PANCRELIPASE AMYLASE\PANCRELIPASE LIPASE\PANCRELIPASE PROTEASE
     Dosage: 24000U CAPSULES
  7. FLOVENT HFA [Concomitant]
     Active Substance: FLUTICASONE PROPIONATE
     Dosage: ORAL, INH 120 INH
  8. INDOMETHACIN [Concomitant]
     Active Substance: INDOMETHACIN
     Dosage: CAPSULES
  9. MELATONIN [Concomitant]
     Active Substance: MELATONIN
     Dosage: TABLETS
  10. POLYETHYLENE GLYCOL 3350 [Concomitant]
     Active Substance: POLYETHYLENE GLYCOL 3350
     Dosage: POWPACKS 14S
  11. PULMOZYME [Concomitant]
     Active Substance: DORNASE ALFA
     Dosage: 30 X 2.5 ML
  12. TRAZODONE [Concomitant]
     Active Substance: TRAZODONE HYDROCHLORIDE
  13. TYLENOL [Concomitant]
     Active Substance: ACETAMINOPHEN
     Dosage: 500 MG E/A (ACETAMINOPHEN) T
  14. AMITRIPTYLINE [Concomitant]
     Active Substance: AMITRIPTYLINE
     Dosage: TABLET
  15. MAGNESIUM [Concomitant]
     Active Substance: MAGNESIUM
     Dosage: TABLET

REACTIONS (10)
  - Anxiety [Recovered/Resolved]
  - Vision blurred [Recovered/Resolved]
  - Hypoaesthesia [Recovered/Resolved]
  - Headache [Recovered/Resolved]
  - Feeling abnormal [Not Recovered/Not Resolved]
  - Anger [Not Recovered/Not Resolved]
  - Emotional distress [Recovering/Resolving]
  - Negative thoughts [Unknown]
  - Insomnia [Unknown]
  - Tachyphrenia [Unknown]

NARRATIVE: CASE EVENT DATE: 20220101
